FAERS Safety Report 20752690 (Version 1)
Quarter: 2022Q2

REPORT INFORMATION
  Report Type: Spontaneous
  Country: US (occurrence: None)
  Receive Date: 20220426
  Receipt Date: 20220426
  Transmission Date: 20220720
  Serious: No
  Sender: FDA-Public Use
  Company Number: US-ROCHE-2886784

PATIENT
  Sex: Male

DRUGS (10)
  1. ESBRIET [Suspect]
     Active Substance: PIRFENIDONE
     Indication: Idiopathic pulmonary fibrosis
     Dosage: TAKE 1 TABLET 3 TIMES A DAY THEN 2 TABLETS 3 TIMES A DAY FOR 7 DAYS AND THEN TAKE 3 TABLETS 3 TIMES
     Route: 048
     Dates: start: 202106
  2. ALBUTEROL SULFATE [Concomitant]
     Active Substance: ALBUTEROL SULFATE
  3. AEROSOL THERAPY (UNK INGREDIENTS) [Concomitant]
  4. DONEPEZIL [Concomitant]
     Active Substance: DONEPEZIL
  5. HOMATROPINE METHYLBROMIDE\HYDROCODONE BITARTRATE [Concomitant]
     Active Substance: HOMATROPINE METHYLBROMIDE\HYDROCODONE BITARTRATE
  6. LORATADINE [Concomitant]
     Active Substance: LORATADINE
  7. LISINOPRIL [Concomitant]
     Active Substance: LISINOPRIL
  8. RANEXA [Concomitant]
     Active Substance: RANOLAZINE
  9. SIMVASTATIN [Concomitant]
     Active Substance: SIMVASTATIN
  10. XARELTO [Concomitant]
     Active Substance: RIVAROXABAN

REACTIONS (8)
  - Nausea [Unknown]
  - Diarrhoea [Unknown]
  - Drug intolerance [Unknown]
  - Malaise [Unknown]
  - Malaise [Unknown]
  - Feeling abnormal [Unknown]
  - Cough [Unknown]
  - Asthenia [Unknown]
